FAERS Safety Report 8182320-0 (Version None)
Quarter: 2012Q1

REPORT INFORMATION
  Report Type: 
  Country: None (occurrence: None)
  Receive Date: 20120302
  Receipt Date: 20120229
  Transmission Date: 20120608
  Serious: Yes (Death)
  Sender: FDA-Public Use
  Company Number: PHHY2012HU017803

PATIENT
  Age: 40 Year
  Sex: Female

DRUGS (3)
  1. ZOMETA [Suspect]
     Dosage: UNK
     Dates: start: 20090615
  2. ZOMETA [Suspect]
     Dosage: UNK
     Dates: start: 20090525
  3. CHEMOTHERAPEUTICS NOS [Concomitant]
     Dosage: UNK

REACTIONS (1)
  - DEATH [None]
